FAERS Safety Report 6533331-X (Version None)
Quarter: 2010Q1

REPORT INFORMATION
  Report Type: 
  Country: None (occurrence: None)
  Receive Date: 20100111
  Receipt Date: 20100106
  Transmission Date: 20100710
  Serious: Yes (Death, Hospitalization)
  Sender: FDA-Public Use
  Company Number: A0838539A

PATIENT
  Sex: Female
  Weight: 77 kg

DRUGS (4)
  1. SERETIDE [Suspect]
     Indication: CHRONIC OBSTRUCTIVE PULMONARY DISEASE
     Dosage: 1PUFF TWICE PER DAY
     Route: 055
     Dates: start: 20060101, end: 20091009
  2. MONOCORDIL [Concomitant]
     Dates: start: 20060101, end: 20091009
  3. LASIX [Concomitant]
     Dosage: 1TAB TWICE PER DAY
     Dates: start: 20090101, end: 20091009
  4. AAS [Concomitant]
     Dosage: 1TAB TWICE PER DAY
     Dates: start: 20080101, end: 20091009

REACTIONS (2)
  - PULMONARY EMBOLISM [None]
  - RENAL FAILURE [None]
